FAERS Safety Report 6049458-5 (Version None)
Quarter: 2009Q1

REPORT INFORMATION
  Report Type: 
  Country: None (occurrence: None)
  Receive Date: 20090121
  Receipt Date: 20090113
  Transmission Date: 20090719
  Serious: Yes (Life-Threatening, Hospitalization)
  Sender: FDA-Public Use
  Company Number: 6048210

PATIENT
  Sex: Female

DRUGS (6)
  1. THYROZOL 5 MG (5 MG, TABLET) (THIAMAZOLE) [Suspect]
     Indication: BASEDOW'S DISEASE
     Dosage: 30 MG (15 MG, 6 TABS/DAY DIVIDED INTO 2 TIMES) ORAL
     Route: 048
     Dates: start: 20081125, end: 20081204
  2. BISOPROLOL FUMARATE [Suspect]
     Indication: HEART RATE
     Dosage: (5 MG) ORAL
     Route: 048
     Dates: start: 20081125, end: 20081204
  3. CEFTRIAXONE [Suspect]
     Indication: ULCERATIVE KERATITIS
     Dosage: (1 GM) INTRAVENOUS
     Route: 042
     Dates: start: 20081125, end: 20081204
  4. LUGOL (1 PERCENT) (IODINE, POTASSIUM IODIDE) [Suspect]
     Indication: THYROID THERAPY
     Dosage: ORAL
     Route: 048
     Dates: start: 20081125, end: 20081204
  5. SEDUXEN (DIAZEPAM) [Concomitant]
  6. VASTAREL (TRIMETAZIDINE HYDROCHLORIDE) [Concomitant]

REACTIONS (2)
  - DRUG HYPERSENSITIVITY [None]
  - STEVENS-JOHNSON SYNDROME [None]
